FAERS Safety Report 26047093 (Version 1)
Quarter: 2025Q4

REPORT INFORMATION
  Report Type: Spontaneous
  Country: JP (occurrence: JP)
  Receive Date: 20251114
  Receipt Date: 20251114
  Transmission Date: 20260117
  Serious: Yes (Hospitalization, Other)
  Sender: MERCK SHARP & DOHME LLC
  Company Number: JP-009507513-2349890

PATIENT
  Age: 77 Year
  Sex: Male

DRUGS (1)
  1. KEYTRUDA [Suspect]
     Active Substance: PEMBROLIZUMAB
     Indication: Squamous cell carcinoma of lung

REACTIONS (9)
  - Pneumonia aspiration [Unknown]
  - Immune-mediated myositis [Unknown]
  - Taste disorder [Recovered/Resolved]
  - Olfactory dysfunction [Recovered/Resolved]
  - Feeding disorder [Unknown]
  - Dyslalia [Unknown]
  - Vocal cord paralysis [Unknown]
  - Hypoaesthesia [Unknown]
  - Rash [Unknown]

NARRATIVE: CASE EVENT DATE: 20240101
